FAERS Safety Report 5392709-0 (Version None)
Quarter: 2007Q3

REPORT INFORMATION
  Report Type: 
  Country: None (occurrence: None)
  Receive Date: 20070720
  Receipt Date: 20070710
  Transmission Date: 20080115
  Serious: Yes (Hospitalization, Other)
  Sender: FDA-Public Use
  Company Number: US-PFIZER INC-2005010692

PATIENT
  Sex: Female
  Weight: 68 kg

DRUGS (10)
  1. LIPITOR [Suspect]
     Indication: BLOOD CHOLESTEROL INCREASED
     Route: 048
  2. CELEBREX [Suspect]
     Indication: ARTHRITIS
     Dosage: TEXT:UNKNOWN-FREQ:UNKNOWN
     Route: 065
  3. BEXTRA [Suspect]
     Indication: ARTHRITIS
     Dosage: TEXT:UNKNOWN-FREQ:UNKNOWN
     Route: 065
  4. BEXTRA [Suspect]
     Indication: SPINAL COLUMN STENOSIS
  5. NORVASC [Suspect]
     Indication: HYPERTENSION
     Route: 048
  6. TENORETIC 100 [Concomitant]
     Route: 048
  7. SYNTHROID [Concomitant]
     Route: 048
  8. ACETAMINOPHEN [Concomitant]
  9. ADVIL LIQUI-GELS [Concomitant]
  10. ACETYLSALICYLIC ACID SRT [Concomitant]

REACTIONS (8)
  - ARTHRITIS [None]
  - BLOOD PRESSURE INADEQUATELY CONTROLLED [None]
  - BLOOD TRIGLYCERIDES INCREASED [None]
  - CARPAL TUNNEL SYNDROME [None]
  - DRUG EFFECT DECREASED [None]
  - HIP ARTHROPLASTY [None]
  - KNEE ARTHROPLASTY [None]
  - SPINAL COLUMN STENOSIS [None]
